FAERS Safety Report 19980783 (Version 3)
Quarter: 2022Q1

REPORT INFORMATION
  Report Type: Report from Study
  Country: SE (occurrence: SE)
  Receive Date: 20211021
  Receipt Date: 20220210
  Transmission Date: 20220423
  Serious: Yes (Hospitalization, Other)
  Sender: FDA-Public Use
  Company Number: SE-NOVARTISPH-NVSC2021SE218068

PATIENT
  Age: 6 Year
  Sex: Female

DRUGS (5)
  1. TRAMETINIB [Suspect]
     Active Substance: TRAMETINIB
     Indication: Metastatic malignant melanoma
     Dosage: UNK
     Route: 065
     Dates: start: 201908, end: 202103
  2. TRAMETINIB [Suspect]
     Active Substance: TRAMETINIB
     Indication: Angiosarcoma
     Dosage: UNK
     Route: 048
     Dates: end: 202104
  3. TRAMETINIB [Suspect]
     Active Substance: TRAMETINIB
     Dosage: 0.032 MG/KG, QD
     Route: 048
     Dates: start: 20190816, end: 20210416
  4. TACROLIMUS [Concomitant]
     Active Substance: TACROLIMUS
     Indication: Liver transplant
     Dosage: UNK
     Route: 065
     Dates: start: 20190623
  5. PREDNISOLONE [Concomitant]
     Active Substance: PREDNISOLONE
     Indication: Liver transplant
     Dosage: UNK
     Route: 065
     Dates: start: 20190707

REACTIONS (7)
  - Bronchitis [Recovered/Resolved]
  - Rash [Unknown]
  - Diarrhoea [Unknown]
  - Alopecia [Recovered/Resolved]
  - Dry skin [Recovered/Resolved]
  - COVID-19 [Recovered/Resolved]
  - Pyrexia [Recovered/Resolved]

NARRATIVE: CASE EVENT DATE: 20191101
